FAERS Safety Report 6985286-1 (Version None)
Quarter: 2010Q3

REPORT INFORMATION
  Report Type: 
  Country: None (occurrence: None)
  Receive Date: 20100915
  Receipt Date: 20100910
  Transmission Date: 20110219
  Serious: Yes (Hospitalization)
  Sender: FDA-Public Use
  Company Number: AU-GENZYME-CAMP-1000473

PATIENT
  Sex: Female
  Weight: 65 kg

DRUGS (10)
  1. ALEMTUZUMAB [Suspect]
     Indication: MULTIPLE SCLEROSIS
     Dosage: 12 MG, QDX5
     Route: 042
     Dates: start: 20090720, end: 20090724
  2. METHYLPREDNISOLONE [Concomitant]
     Indication: MULTIPLE SCLEROSIS
     Dosage: 1 G, QDX3
     Route: 042
     Dates: start: 20090720, end: 20090722
  3. LOVAN [Concomitant]
     Indication: ANXIETY
     Dosage: 20 MG, QD
     Route: 048
     Dates: start: 20080201
  4. LOVAN [Concomitant]
     Indication: DEPRESSION
  5. KEFLEX [Concomitant]
     Indication: PROPHYLAXIS URINARY TRACT INFECTION
     Dosage: 250 MG, PRN
     Route: 048
     Dates: start: 20061001
  6. VALIUM [Concomitant]
     Indication: INSOMNIA
     Dosage: 1 MG, PRN
     Route: 048
     Dates: start: 20030101
  7. PANADOL [Concomitant]
     Indication: PRODUCT USED FOR UNKNOWN INDICATION
     Dosage: 500 MG, PRN
     Route: 048
     Dates: start: 20090720
  8. VENTOLIN [Concomitant]
     Indication: PRODUCT USED FOR UNKNOWN INDICATION
     Dosage: 100 MCG, PRN
     Route: 055
     Dates: start: 20090729
  9. NASONEX [Concomitant]
     Indication: PRODUCT USED FOR UNKNOWN INDICATION
     Dosage: 1 SPRAY, BID
     Route: 045
     Dates: start: 20090822
  10. METOCLOPRAMIDE [Concomitant]
     Indication: NAUSEA
     Dosage: UNK

REACTIONS (1)
  - LABYRINTHITIS [None]
